FAERS Safety Report 6963090-8 (Version None)
Quarter: 2010Q3

REPORT INFORMATION
  Report Type: 
  Country: None (occurrence: None)
  Receive Date: 20100902
  Receipt Date: 20100824
  Transmission Date: 20110219
  Serious: Yes (Hospitalization, Other)
  Sender: FDA-Public Use
  Company Number: US-CELGENEUS-163-21880-10082519

PATIENT
  Sex: Female

DRUGS (12)
  1. REVLIMID [Suspect]
     Indication: MULTIPLE MYELOMA
     Route: 048
     Dates: start: 20100628
  2. REVLIMID [Suspect]
     Route: 048
     Dates: start: 20100814
  3. VYTORIN [Suspect]
     Indication: PRODUCT USED FOR UNKNOWN INDICATION
     Route: 065
     Dates: end: 20100701
  4. ASPIRIN [Concomitant]
     Indication: ANGIOPLASTY
     Route: 048
     Dates: start: 20071001
  5. PLAVIX [Concomitant]
     Indication: ANGIOPLASTY
     Route: 048
     Dates: start: 20071001
  6. ONDANSETRON [Concomitant]
     Indication: NAUSEA
     Route: 065
     Dates: start: 20100510
  7. COMPAZINE [Concomitant]
     Indication: NAUSEA
     Route: 065
     Dates: start: 20100510
  8. LISINOPRIL [Concomitant]
     Indication: HYPERTENSION
     Route: 065
     Dates: start: 20100513
  9. DEXAMETHASONE [Concomitant]
     Indication: MULTIPLE MYELOMA
     Route: 048
     Dates: start: 20100610
  10. ALBUTEROL [Concomitant]
     Dosage: 2 PUFFS
     Route: 055
     Dates: start: 20100706
  11. NITROGLYCERIN [Concomitant]
     Indication: CORONARY ARTERY DISEASE
     Route: 062
     Dates: start: 20100726
  12. LORAZEPAM [Concomitant]
     Indication: ANXIETY
     Dosage: 0.5-1MG
     Route: 048
     Dates: start: 20100726

REACTIONS (2)
  - HEPATIC FUNCTION ABNORMAL [None]
  - RHABDOMYOLYSIS [None]
